FAERS Safety Report 9842258 (Version 2)
Quarter: 2014Q1

REPORT INFORMATION
  Report Type: Spontaneous
  Country: FR (occurrence: FR)
  Receive Date: 20140124
  Receipt Date: 20140131
  Transmission Date: 20141002
  Serious: Yes (Life-Threatening, Other)
  Sender: FDA-Public Use
  Company Number: FR-PFIZER INC-2014020668

PATIENT
  Age: 36 Year
  Sex: Female

DRUGS (12)
  1. RELPAX [Suspect]
     Dosage: UNK
     Route: 048
     Dates: end: 20131203
  2. VALIUM [Suspect]
     Dosage: UNK
     Route: 048
     Dates: end: 20131203
  3. STILNOX [Suspect]
     Dosage: UNK
     Route: 048
     Dates: end: 20131203
  4. DEPAKINE [Suspect]
     Dosage: UNK
     Route: 048
     Dates: end: 20131203
  5. TERCIAN [Suspect]
     Dosage: UNK
     Route: 048
     Dates: end: 20131203
  6. LEVOMEPROMAZINE [Suspect]
     Dosage: UNK
     Route: 048
     Dates: end: 20131203
  7. SEROPLEX [Suspect]
     Dosage: UNK
     Dates: end: 20131203
  8. ZYPREXA [Suspect]
     Dosage: UNK
     Route: 048
     Dates: end: 20131203
  9. KETUM [Concomitant]
     Indication: PAIN
     Dosage: UNK
  10. PARACETAMOL [Concomitant]
     Indication: PAIN
     Dosage: UNK
  11. NOCTRAN [Concomitant]
  12. NORDAZEPAM [Concomitant]
     Dosage: UNK

REACTIONS (6)
  - Coma [Recovered/Resolved]
  - Disturbance in attention [Recovered/Resolved]
  - Hypothermia [Recovered/Resolved]
  - Circulatory collapse [Recovered/Resolved]
  - Toxicity to various agents [Unknown]
  - Pneumonia aspiration [Unknown]
